FAERS Safety Report 23810929 (Version 3)
Quarter: 2025Q3

REPORT INFORMATION
  Report Type: Other
  Country: US (occurrence: US)
  Receive Date: 20240502
  Receipt Date: 20250911
  Transmission Date: 20251020
  Serious: Yes (Other)
  Sender: TRAVERE THERAPEUTICS
  Company Number: US-TRAVERE-2024TVT00417

PATIENT
  Age: 40 Year
  Sex: Female

DRUGS (3)
  1. FILSPARI [Suspect]
     Active Substance: SPARSENTAN
     Indication: IgA nephropathy
     Route: 048
     Dates: start: 20240417
  2. FILSPARI [Suspect]
     Active Substance: SPARSENTAN
     Indication: Proteinuria
     Route: 048
  3. FILSPARI [Suspect]
     Active Substance: SPARSENTAN
     Route: 048
     Dates: start: 20240403

REACTIONS (7)
  - Facial paralysis [Recovered/Resolved]
  - Hypotension [Unknown]
  - Vision blurred [Unknown]
  - Brain fog [Unknown]
  - Somnolence [Unknown]
  - Dizziness [Unknown]
  - Blood urine present [Unknown]
